FAERS Safety Report 8777333 (Version 1)
Quarter: 2012Q4

REPORT INFORMATION
  Report Type: 
  Country: NL (occurrence: NL)
  Receive Date: 20120911
  Receipt Date: 20120911
  Transmission Date: 20130627
  Serious: Yes (Hospitalization)
  Sender: FDA-Public Use
  Company Number: NL-PFIZER INC-2012219934

PATIENT
  Age: 68 Year
  Sex: Male

DRUGS (1)
  1. CARDURA XL [Suspect]
     Dosage: 4 mg, UNK

REACTIONS (1)
  - Prostate cancer [Unknown]
